FAERS Safety Report 23815804 (Version 1)
Quarter: 2024Q2

REPORT INFORMATION
  Report Type: Spontaneous
  Country: US (occurrence: None)
  Receive Date: 20240502
  Receipt Date: 20240502
  Transmission Date: 20240716
  Serious: Yes (Life-Threatening, Disabling, Other)
  Sender: FDA-Public Use
  Company Number: None

PATIENT
  Age: 72 Year
  Sex: Male
  Weight: 130.5 kg

DRUGS (11)
  1. OZEMPIC [Suspect]
     Active Substance: SEMAGLUTIDE
     Indication: Diabetes mellitus
     Dosage: OTHER FREQUENCY : 1 WEEK?OTHER ROUTE : INJECTIONS?
     Route: 050
     Dates: start: 20230910, end: 20231028
  2. AMLODIPINE [Concomitant]
     Active Substance: AMLODIPINE BESYLATE
  3. FARXIGA PIOGLITAZONR [Concomitant]
  4. GLIMEPIRIDE [Concomitant]
     Active Substance: GLIMEPIRIDE
  5. ROUSVASSTATIN [Concomitant]
  6. OMEPRAZOLE [Concomitant]
     Active Substance: DONEPEZIL HYDROCHLORIDE\OMEPRAZOLE\OMEPRAZOLE MAGNESIUM
  7. CREON [Concomitant]
     Active Substance: PANCRELIPASE AMYLASE\PANCRELIPASE LIPASE\PANCRELIPASE PROTEASE
  8. CLOPDOGTEL [Concomitant]
  9. MYTBECTRIG [Concomitant]
  10. VITAMIN E [Concomitant]
     Active Substance: .ALPHA.-TOCOPHEROL
  11. ASPIRIN [Concomitant]
     Active Substance: ASPIRIN

REACTIONS (8)
  - Impaired gastric emptying [None]
  - Pancreatic failure [None]
  - Diarrhoea [None]
  - Anal incontinence [None]
  - Decreased appetite [None]
  - Ageusia [None]
  - Immune system disorder [None]
  - Victim of abuse [None]

NARRATIVE: CASE EVENT DATE: 20230920
